FAERS Safety Report 24638322 (Version 1)
Quarter: 2024Q4

REPORT INFORMATION
  Report Type: Spontaneous
  Country: US (occurrence: None)
  Receive Date: 20241119
  Receipt Date: 20241119
  Transmission Date: 20250114
  Serious: Yes (Hospitalization)
  Sender: Public
  Company Number: None

PATIENT
  Age: 49 Year
  Sex: Female

DRUGS (1)
  1. LAMICTAL [Suspect]
     Active Substance: LAMOTRIGINE
     Dosage: FREQUENCY : DAILY;?
     Route: 048
     Dates: end: 20240925

REACTIONS (3)
  - Rash [None]
  - Stevens-Johnson syndrome [None]
  - Skin exfoliation [None]

NARRATIVE: CASE EVENT DATE: 20240925
